FAERS Safety Report 10024057 (Version 1)
Quarter: 2014Q1

REPORT INFORMATION
  Report Type: Spontaneous
  Country: JP (occurrence: JP)
  Receive Date: 20140320
  Receipt Date: 20140320
  Transmission Date: 20141002
  Serious: Yes (Other)
  Sender: FDA-Public Use
  Company Number: JP-PFIZER INC-2014079995

PATIENT
  Age: 57 Year
  Sex: Male

DRUGS (1)
  1. HYDROCORTISONE SODIUM SUCCINATE [Suspect]
     Indication: HYPOPITUITARISM
     Dosage: 200 MG, DAILY
     Route: 041

REACTIONS (1)
  - Substance-induced psychotic disorder [Recovered/Resolved]
